FAERS Safety Report 7502598-3 (Version None)
Quarter: 2011Q2

REPORT INFORMATION
  Report Type: 
  Country: None (occurrence: None)
  Receive Date: 20110524
  Receipt Date: 20110524
  Transmission Date: 20111010
  Serious: Yes (Hospitalization)
  Sender: FDA-Public Use
  Company Number: None

PATIENT
  Age: 64 Year
  Sex: Female
  Weight: 81.1939 kg

DRUGS (2)
  1. WARFARIN SODIUM [Suspect]
     Indication: PROTEIN S ABNORMAL
  2. WARFARIN SODIUM [Suspect]

REACTIONS (2)
  - PRODUCT QUALITY ISSUE [None]
  - INTERNATIONAL NORMALISED RATIO DECREASED [None]
